FAERS Safety Report 26147780 (Version 1)
Quarter: 2025Q4

REPORT INFORMATION
  Report Type: Spontaneous
  Country: CN (occurrence: CN)
  Receive Date: 20251211
  Receipt Date: 20251211
  Transmission Date: 20260117
  Serious: Yes (Life-Threatening, Other)
  Sender: MSN LABORATORIES PRIVATE LIMITED
  Company Number: CN-MSNLABS-2025MSNLIT03775

PATIENT

DRUGS (3)
  1. PACLITAXEL [Suspect]
     Active Substance: PACLITAXEL
     Indication: Ovarian cancer
     Route: 065
  2. CARBOPLATIN [Suspect]
     Active Substance: CARBOPLATIN
     Indication: Ovarian cancer
     Route: 065
  3. ELTROMBOPAG [Concomitant]
     Active Substance: ELTROMBOPAG
     Indication: Thrombocytopenia
     Route: 065

REACTIONS (5)
  - Conjunctival haemorrhage [Unknown]
  - Thrombocytopenia [Recovered/Resolved]
  - Granulocytopenia [Unknown]
  - Leukopenia [Unknown]
  - Haemorrhage [Unknown]
